FAERS Safety Report 14333416 (Version 4)
Quarter: 2018Q1

REPORT INFORMATION
  Report Type: Spontaneous
  Country: ES (occurrence: ES)
  Receive Date: 20171228
  Receipt Date: 20180122
  Transmission Date: 20180509
  Serious: Yes (Death, Hospitalization, Other)
  Sender: FDA-Public Use
  Company Number: ES-PFIZER INC-2017548010

PATIENT
  Age: 22 Year
  Sex: Female

DRUGS (4)
  1. METOTREXATO WYETH [Suspect]
     Active Substance: METHOTREXATE SODIUM
     Indication: RHEUMATOID ARTHRITIS
     Dosage: 6 TABLETS OF 2.5 MG EACH ONE
     Route: 048
     Dates: start: 2014
  2. ENBREL [Suspect]
     Active Substance: ETANERCEPT
     Indication: RHEUMATOID ARTHRITIS
     Dosage: UNK
     Dates: start: 2014
  3. METOTREXATO WYETH [Suspect]
     Active Substance: METHOTREXATE SODIUM
     Dosage: 8 TABLETS
     Route: 048
  4. METOTREXATO WYETH [Suspect]
     Active Substance: METHOTREXATE SODIUM
     Dosage: 10 TABLETS AT ONCE
     Route: 048
     Dates: end: 201605

REACTIONS (19)
  - Death [Fatal]
  - Multiple organ dysfunction syndrome [Fatal]
  - Drug-induced liver injury [Unknown]
  - Platelet count decreased [Unknown]
  - Liver disorder [Unknown]
  - Malaise [Unknown]
  - Skin exfoliation [Unknown]
  - Drug ineffective [Unknown]
  - Internal haemorrhage [Unknown]
  - Intestinal perforation [Unknown]
  - Skin infection [Unknown]
  - Rash [Unknown]
  - Pyrexia [Unknown]
  - Cerebrovascular accident [Unknown]
  - Seizure [Unknown]
  - Gastrointestinal inflammation [Unknown]
  - Hepatic necrosis [Unknown]
  - Pancreatitis necrotising [Unknown]
  - Renal failure [Unknown]

NARRATIVE: CASE EVENT DATE: 2016
